FAERS Safety Report 8983474 (Version 1)
Quarter: 2012Q4

REPORT INFORMATION
  Report Type: 
  Country: US (occurrence: US)
  Receive Date: 20121224
  Receipt Date: 20121224
  Transmission Date: 20130627
  Serious: No
  Sender: FDA-Public Use
  Company Number: US-BIOGENIDEC-2012BI060947

PATIENT
  Sex: Female

DRUGS (2)
  1. TYSABRI [Suspect]
     Indication: MULTIPLE SCLEROSIS
     Route: 042
     Dates: start: 20080818, end: 20091028
  2. TYSABRI [Suspect]
     Indication: MULTIPLE SCLEROSIS
     Route: 042
     Dates: start: 20121018

REACTIONS (10)
  - Muscular weakness [Recovered/Resolved]
  - Pain [Recovered/Resolved]
  - Agitation [Recovered/Resolved]
  - Memory impairment [Unknown]
  - Fatigue [Recovered/Resolved]
  - Hypersensitivity [Not Recovered/Not Resolved]
  - Nausea [Recovered/Resolved]
  - Multiple sclerosis relapse [Not Recovered/Not Resolved]
  - Feeling abnormal [Recovered/Resolved]
  - Cognitive disorder [Recovered/Resolved]
